FAERS Safety Report 4502331-3 (Version None)
Quarter: 2004Q4

REPORT INFORMATION
  Report Type: 
  Country: None (occurrence: None)
  Receive Date: 20041116
  Receipt Date: 20041108
  Transmission Date: 20050328
  Serious: Yes (Other)
  Sender: FDA-Public Use
  Company Number: NL-GLAXOSMITHKLINE-B0356825A

PATIENT
  Age: 72 Year
  Sex: Female

DRUGS (25)
  1. BUPROPION HYDROCHLORIDE [Suspect]
     Indication: DRUG USE FOR UNKNOWN INDICATION
     Dosage: 150MG TWICE PER DAY
     Dates: start: 20040824, end: 20040906
  2. LANTUS [Suspect]
  3. INSULATARD NOVOLET [Suspect]
  4. NOVORAPID [Suspect]
  5. INSULIN ACTRAPID [Suspect]
  6. METFORMIN [Suspect]
     Dosage: 500MG THREE TIMES PER DAY
  7. ACETYLCYSTEINE [Concomitant]
     Dosage: 600MG PER DAY
  8. METOCLOPRAMIDE [Concomitant]
     Dosage: 10MG THREE TIMES PER DAY
  9. PREDNISOLONE [Concomitant]
  10. ACTONEL [Concomitant]
     Dosage: 35MG WEEKLY
  11. PARACETAMOL + CODEINE [Concomitant]
  12. TEMAZEPAM [Concomitant]
     Dosage: 10MG AS REQUIRED
  13. FORADIL [Concomitant]
     Dosage: 12MCG TWICE PER DAY
  14. COMBIVENT [Concomitant]
  15. PULMICORT [Concomitant]
     Dosage: 500MCG TWICE PER DAY
  16. ATROVENT [Concomitant]
  17. PANTOZOL [Concomitant]
     Dosage: 20MG PER DAY
  18. THEOLAIR RETARD [Concomitant]
     Dosage: 250MG TWICE PER DAY
  19. LANOXIN [Concomitant]
     Dosage: .125MG PER DAY
  20. FUROSEMIDE [Concomitant]
     Dosage: 40MG PER DAY
  21. SPIRONOLACTONE [Concomitant]
     Dosage: 25MG PER DAY
  22. EMCOR [Concomitant]
     Dosage: 2.5MG PER DAY
  23. COVERSYL [Concomitant]
     Dosage: 4MG PER DAY
  24. LIPITOR [Concomitant]
     Dosage: 20MG PER DAY
  25. SPIRIVA [Concomitant]
     Dosage: 18MCG PER DAY

REACTIONS (2)
  - DRUG INTERACTION [None]
  - HYPOGLYCAEMIA [None]
